FAERS Safety Report 20200546 (Version 1)
Quarter: 2021Q4

REPORT INFORMATION
  Report Type: Spontaneous
  Country: TR (occurrence: TR)
  Receive Date: 20211217
  Receipt Date: 20211217
  Transmission Date: 20220303
  Serious: Yes (Other)
  Sender: FDA-Public Use
  Company Number: TR-UCBSA-2021058065

PATIENT
  Age: 48 Year
  Sex: Male

DRUGS (5)
  1. KEPPRA [Suspect]
     Active Substance: LEVETIRACETAM
     Indication: Product used for unknown indication
     Dosage: 1500 MILLIGRAM, 2X/DAY (BID)
  2. CEFTRIAXONE [Concomitant]
     Active Substance: CEFTRIAXONE
     Indication: Product used for unknown indication
     Dosage: 2 GRAM, PER DAY
  3. FAVIPIRAVIR [Concomitant]
     Active Substance: FAVIPIRAVIR
     Indication: COVID-19
  4. AMPICILLIN [Concomitant]
     Active Substance: AMPICILLIN
     Indication: Product used for unknown indication
     Dosage: 4 GRAM, EERY 8 HR
  5. AMIKACIN [Concomitant]
     Active Substance: AMIKACIN
     Indication: Product used for unknown indication
     Dosage: .40 GRAM, ONCE DAILY (QD)
     Route: 042

REACTIONS (7)
  - Paralysis [Unknown]
  - Cerebral haematoma [Unknown]
  - Altered state of consciousness [Unknown]
  - Haematoma evacuation [Unknown]
  - Medical device implantation [Unknown]
  - Memory impairment [Unknown]
  - SARS-CoV-2 test negative [Unknown]
